FAERS Safety Report 24709623 (Version 1)
Quarter: 2024Q4

REPORT INFORMATION
  Report Type: Spontaneous
  Country: US (occurrence: US)
  Receive Date: 20241209
  Receipt Date: 20241209
  Transmission Date: 20250114
  Serious: No
  Sender: ELI LILLY AND COMPANY
  Company Number: US-ELI_LILLY_AND_COMPANY-US202411006181

PATIENT
  Age: 53 Year
  Sex: Female

DRUGS (2)
  1. TALTZ [Suspect]
     Active Substance: IXEKIZUMAB
     Indication: Ankylosing spondylitis
     Dosage: 80 MG, OTHER, LOADING DOSE
     Route: 058
     Dates: start: 20241108
  2. INFLIXIMAB [Concomitant]
     Active Substance: INFLIXIMAB
     Indication: Ankylosing spondylitis

REACTIONS (7)
  - Off label use [Unknown]
  - Aphthous ulcer [Not Recovered/Not Resolved]
  - Oral disorder [Not Recovered/Not Resolved]
  - Haemorrhage [Recovered/Resolved]
  - Impaired healing [Not Recovered/Not Resolved]
  - Platelet count decreased [Unknown]
  - Oral pain [Not Recovered/Not Resolved]

NARRATIVE: CASE EVENT DATE: 20241101
